FAERS Safety Report 5535566-1 (Version None)
Quarter: 2007Q4

REPORT INFORMATION
  Report Type: 
  Country: None (occurrence: None)
  Receive Date: 20071206
  Receipt Date: 20071129
  Transmission Date: 20080405
  Serious: Yes (Other)
  Sender: FDA-Public Use
  Company Number: US-WYE-H01509707

PATIENT
  Sex: Female
  Weight: 96.7 kg

DRUGS (4)
  1. PREMPRO [Suspect]
     Indication: MENOPAUSE
     Dosage: 0.625/ 2.5MG AT AN UNKNOWN FREQUENCY
     Route: 048
     Dates: start: 20070901
  2. TRILEPTAL [Concomitant]
     Dosage: UNKNOWN
     Route: 065
  3. GLYBURIDE [Concomitant]
     Dosage: UNKNOWN
     Route: 065
  4. ZONEGRAN [Concomitant]
     Dosage: UNKNOWN
     Route: 065

REACTIONS (6)
  - CONVULSION [None]
  - GAIT DISTURBANCE [None]
  - HEADACHE [None]
  - HYPOAESTHESIA [None]
  - PARAESTHESIA [None]
  - PRURITUS GENERALISED [None]
